FAERS Safety Report 26191527 (Version 1)
Quarter: 2025Q4

REPORT INFORMATION
  Report Type: Spontaneous
  Country: CN (occurrence: CN)
  Receive Date: 20251223
  Receipt Date: 20251223
  Transmission Date: 20260118
  Serious: Yes (Hospitalization)
  Sender: MYLAN
  Company Number: CN-MYLANLABS-2025M1109266

PATIENT
  Age: 53 Year
  Sex: Male

DRUGS (32)
  1. AMLODIPINE [Interacting]
     Active Substance: AMLODIPINE BESYLATE
     Indication: Product used for unknown indication
     Dosage: 5 MILLIGRAM, QD
     Route: 061
  2. AMLODIPINE [Interacting]
     Active Substance: AMLODIPINE BESYLATE
     Dosage: 5 MILLIGRAM, QD
     Route: 048
  3. AMLODIPINE [Interacting]
     Active Substance: AMLODIPINE BESYLATE
     Dosage: 5 MILLIGRAM, QD
     Route: 048
  4. AMLODIPINE [Interacting]
     Active Substance: AMLODIPINE BESYLATE
     Dosage: 5 MILLIGRAM, QD
     Route: 061
  5. OXALIPLATIN [Interacting]
     Active Substance: OXALIPLATIN
     Indication: Rectal cancer
     Dosage: 150 MILLIGRAM, CYCLE, PART OF MFOLFOX REGIMEN
  6. OXALIPLATIN [Interacting]
     Active Substance: OXALIPLATIN
     Dosage: 150 MILLIGRAM, CYCLE, PART OF MFOLFOX REGIMEN
  7. OXALIPLATIN [Interacting]
     Active Substance: OXALIPLATIN
     Dosage: 150 MILLIGRAM, CYCLE, PART OF MFOLFOX REGIMEN
     Route: 065
  8. OXALIPLATIN [Interacting]
     Active Substance: OXALIPLATIN
     Dosage: 150 MILLIGRAM, CYCLE, PART OF MFOLFOX REGIMEN
     Route: 065
  9. OXALIPLATIN [Interacting]
     Active Substance: OXALIPLATIN
     Dosage: 150 MILLIGRAM, CYCLE, PART OF MFOLFOX REGIMEN
  10. OXALIPLATIN [Interacting]
     Active Substance: OXALIPLATIN
     Dosage: 150 MILLIGRAM, CYCLE, PART OF MFOLFOX REGIMEN
  11. OXALIPLATIN [Interacting]
     Active Substance: OXALIPLATIN
     Dosage: 150 MILLIGRAM, CYCLE, PART OF MFOLFOX REGIMEN
     Route: 065
  12. OXALIPLATIN [Interacting]
     Active Substance: OXALIPLATIN
     Dosage: 150 MILLIGRAM, CYCLE, PART OF MFOLFOX REGIMEN
     Route: 065
  13. FLUOROURACIL [Suspect]
     Active Substance: FLUOROURACIL
     Indication: Rectal cancer
     Dosage: 0.6 GRAM, CYCLE, PART OF MFOLFOX REGIMEN
  14. FLUOROURACIL [Suspect]
     Active Substance: FLUOROURACIL
     Dosage: 0.6 GRAM, CYCLE, PART OF MFOLFOX REGIMEN
     Route: 042
  15. FLUOROURACIL [Suspect]
     Active Substance: FLUOROURACIL
     Dosage: 0.6 GRAM, CYCLE, PART OF MFOLFOX REGIMEN
     Route: 042
  16. FLUOROURACIL [Suspect]
     Active Substance: FLUOROURACIL
     Dosage: 0.6 GRAM, CYCLE, PART OF MFOLFOX REGIMEN
  17. FLUOROURACIL [Suspect]
     Active Substance: FLUOROURACIL
     Indication: Rectal cancer
     Dosage: 4.2 GRAM, CYCLE, CONTINUOUS PUMPING FOR 46 HOURS, PART OF MFOLFOX REGIMEN
  18. FLUOROURACIL [Suspect]
     Active Substance: FLUOROURACIL
     Dosage: 4.2 GRAM, CYCLE, CONTINUOUS PUMPING FOR 46 HOURS, PART OF MFOLFOX REGIMEN
  19. FLUOROURACIL [Suspect]
     Active Substance: FLUOROURACIL
     Dosage: 4.2 GRAM, CYCLE, CONTINUOUS PUMPING FOR 46 HOURS, PART OF MFOLFOX REGIMEN
     Route: 065
  20. FLUOROURACIL [Suspect]
     Active Substance: FLUOROURACIL
     Dosage: 4.2 GRAM, CYCLE, CONTINUOUS PUMPING FOR 46 HOURS, PART OF MFOLFOX REGIMEN
     Route: 065
  21. FLUOROURACIL [Suspect]
     Active Substance: FLUOROURACIL
     Dosage: UNK, CYCLE, PART OF MFOLFOX REGIMEN
  22. FLUOROURACIL [Suspect]
     Active Substance: FLUOROURACIL
     Dosage: UNK, CYCLE, PART OF MFOLFOX REGIMEN
  23. FLUOROURACIL [Suspect]
     Active Substance: FLUOROURACIL
     Dosage: UNK, CYCLE, PART OF MFOLFOX REGIMEN
     Route: 065
  24. FLUOROURACIL [Suspect]
     Active Substance: FLUOROURACIL
     Dosage: UNK, CYCLE, PART OF MFOLFOX REGIMEN
     Route: 065
  25. LEUCOVORIN CALCIUM [Suspect]
     Active Substance: LEUCOVORIN CALCIUM
     Indication: Rectal cancer
     Dosage: 600 MILLIGRAM, CYCLE, AFTER SURGERY FOR 12 CYCLES, PART OF MFOLFOX REGIMEN
  26. LEUCOVORIN CALCIUM [Suspect]
     Active Substance: LEUCOVORIN CALCIUM
     Dosage: 600 MILLIGRAM, CYCLE, AFTER SURGERY FOR 12 CYCLES, PART OF MFOLFOX REGIMEN
  27. LEUCOVORIN CALCIUM [Suspect]
     Active Substance: LEUCOVORIN CALCIUM
     Dosage: 600 MILLIGRAM, CYCLE, AFTER SURGERY FOR 12 CYCLES, PART OF MFOLFOX REGIMEN
     Route: 065
  28. LEUCOVORIN CALCIUM [Suspect]
     Active Substance: LEUCOVORIN CALCIUM
     Dosage: 600 MILLIGRAM, CYCLE, AFTER SURGERY FOR 12 CYCLES, PART OF MFOLFOX REGIMEN
     Route: 065
  29. LEUCOVORIN CALCIUM [Suspect]
     Active Substance: LEUCOVORIN CALCIUM
     Dosage: 600 MILLIGRAM, CYCLE, PART OF MFOLFOX REGIMEN
  30. LEUCOVORIN CALCIUM [Suspect]
     Active Substance: LEUCOVORIN CALCIUM
     Dosage: 600 MILLIGRAM, CYCLE, PART OF MFOLFOX REGIMEN
  31. LEUCOVORIN CALCIUM [Suspect]
     Active Substance: LEUCOVORIN CALCIUM
     Dosage: 600 MILLIGRAM, CYCLE, PART OF MFOLFOX REGIMEN
     Route: 065
  32. LEUCOVORIN CALCIUM [Suspect]
     Active Substance: LEUCOVORIN CALCIUM
     Dosage: 600 MILLIGRAM, CYCLE, PART OF MFOLFOX REGIMEN
     Route: 065

REACTIONS (6)
  - Electrocardiogram abnormal [Recovered/Resolved]
  - Bundle branch block right [Recovered/Resolved]
  - Electrocardiogram ST segment elevation [Recovered/Resolved]
  - Electrocardiogram T wave inversion [Recovered/Resolved]
  - Sinus arrhythmia [Recovered/Resolved]
  - Drug interaction [Recovered/Resolved]
